FAERS Safety Report 20221319 (Version 2)
Quarter: 2022Q1

REPORT INFORMATION
  Report Type: Spontaneous
  Country: BR (occurrence: BR)
  Receive Date: 20211223
  Receipt Date: 20220104
  Transmission Date: 20220423
  Serious: Yes (Hospitalization, Other)
  Sender: FDA-Public Use
  Company Number: BR-SA-SAC20210609000094

PATIENT
  Sex: Female
  Weight: 57 kg

DRUGS (4)
  1. ENOXAPARIN SODIUM [Suspect]
     Active Substance: ENOXAPARIN SODIUM
     Indication: Hypercoagulation
     Dosage: 40 MG, QD (AT NIGHT) (IN THE ABDOMEN)
     Route: 065
     Dates: start: 20210327
  2. ASPIRIN [Concomitant]
     Active Substance: ASPIRIN
     Indication: Hypercoagulation
     Dosage: UNK
     Route: 065
  3. KALIS [Concomitant]
     Indication: Endometriosis
     Dosage: UNK
  4. PURAN [Concomitant]
     Active Substance: LEVOTHYROXINE SODIUM
     Indication: Thyroid disorder
     Dosage: UNK
     Route: 065

REACTIONS (18)
  - Respiratory arrest [Unknown]
  - Complication of delivery [Unknown]
  - Uterine disorder [Unknown]
  - Uterine leiomyoma [Unknown]
  - Cervix disorder [Unknown]
  - Uterine leiomyoma [Unknown]
  - Condition aggravated [Unknown]
  - Vomiting [Unknown]
  - Malaise [Unknown]
  - Mental disorder [Unknown]
  - Abdominal discomfort [Unknown]
  - Gastrointestinal disorder [Unknown]
  - Haemorrhage [Recovered/Resolved]
  - Internal haemorrhage [Unknown]
  - Renal disorder [Unknown]
  - Maternal exposure during breast feeding [Unknown]
  - Maternal exposure during pregnancy [Unknown]
  - Product use in unapproved indication [Unknown]

NARRATIVE: CASE EVENT DATE: 20210521
